FAERS Safety Report 17215265 (Version 1)
Quarter: 2019Q4

REPORT INFORMATION
  Report Type: Report from Study
  Country: US (occurrence: US)
  Receive Date: 20191230
  Receipt Date: 20191230
  Transmission Date: 20200122
  Serious: No
  Sender: FDA-Public Use
  Company Number: US-CLOVIS ONCOLOGY-CLO-2019-002159

PATIENT
  Sex: Female

DRUGS (4)
  1. RUBRACA [Suspect]
     Active Substance: RUCAPARIB CAMSYLATE
     Indication: ENDOMETRIAL NEOPLASM
     Dosage: 400 MG, BID
     Route: 048
     Dates: start: 20190823
  2. RUBRACA [Suspect]
     Active Substance: RUCAPARIB CAMSYLATE
     Indication: MALIGNANT PLEURAL EFFUSION
     Dosage: 600 MG, BID
     Route: 048
     Dates: start: 20190824
  3. RUBRACA [Suspect]
     Active Substance: RUCAPARIB CAMSYLATE
     Dosage: 400 MG, BID
     Route: 048
     Dates: start: 20190824
  4. RITALIN [Concomitant]
     Active Substance: METHYLPHENIDATE HYDROCHLORIDE
     Indication: PRODUCT USED FOR UNKNOWN INDICATION

REACTIONS (4)
  - Asthenia [Unknown]
  - Fatigue [Not Recovered/Not Resolved]
  - Nausea [Unknown]
  - Product use in unapproved indication [Unknown]

NARRATIVE: CASE EVENT DATE: 2019
